FAERS Safety Report 8598662-0 (Version None)
Quarter: 2012Q3

REPORT INFORMATION
  Report Type: 
  Country: None (occurrence: None)
  Receive Date: 20120816
  Receipt Date: 19960813
  Transmission Date: 20120928
  Serious: Yes (Other)
  Sender: FDA-Public Use
  Company Number: US-ROCHE-1100690

PATIENT
  Sex: Male

DRUGS (3)
  1. NITROGLYCERINE DRIP [Concomitant]
  2. ACTIVASE [Suspect]
     Indication: ACUTE MYOCARDIAL INFARCTION
  3. HEPARIN [Concomitant]

REACTIONS (2)
  - ELECTROCARDIOGRAM ST-T SEGMENT ABNORMAL [None]
  - VENTRICULAR EXTRASYSTOLES [None]
